FAERS Safety Report 5126407-5 (Version None)
Quarter: 2006Q3

REPORT INFORMATION
  Report Type: 
  Country: None (occurrence: None)
  Receive Date: 20060828
  Receipt Date: 20060403
  Transmission Date: 20061208
  Serious: Yes (Other)
  Sender: FDA-Public Use
  Company Number: 29012

PATIENT
  Age: 52 Year
  Sex: Male

DRUGS (4)
  1. TAMBOCOR [Suspect]
     Indication: ATRIAL FIBRILLATION
     Dosage: (50 MG,2 IN 1 DAY(S)),ORAL
     Route: 048
     Dates: start: 20060220, end: 20060324
  2. HYZAAR [Suspect]
     Indication: HYPERTENSION
     Dosage: ORAL
     Route: 048
     Dates: start: 20060101
  3. DIGITEK (TABLETS) [Suspect]
     Indication: ATRIAL FIBRILLATION
     Dosage: ORAL
     Route: 048
     Dates: start: 20060101
  4. CARDIZEM [Suspect]
     Indication: HYPERTENSION
     Dosage: ORAL
     Route: 048
     Dates: start: 20060220

REACTIONS (4)
  - FALL [None]
  - INJURY [None]
  - MYALGIA [None]
  - NEUROPATHY PERIPHERAL [None]
